FAERS Safety Report 18085776 (Version 1)
Quarter: 2020Q3

REPORT INFORMATION
  Report Type: Spontaneous
  Country: US (occurrence: US)
  Receive Date: 20200728
  Receipt Date: 20200728
  Transmission Date: 20201103
  Serious: Yes (Death)
  Sender: FDA-Public Use
  Company Number: None

PATIENT
  Age: 78 Year
  Sex: Male
  Weight: 82 kg

DRUGS (10)
  1. CHOLESCLCIFEROL [Concomitant]
     Dates: start: 20200723, end: 20200727
  2. ZINC. [Concomitant]
     Active Substance: ZINC
     Dates: start: 20200723, end: 20200727
  3. ENOXAPARIN [Concomitant]
     Active Substance: ENOXAPARIN
     Dates: start: 20200723, end: 20200727
  4. INSULIN LISPRO SLIDING SCALE [Concomitant]
     Dates: start: 20200722, end: 20200727
  5. DEXAMEHASONE [Concomitant]
     Dates: start: 20200722, end: 20200727
  6. HUMULIN 70/30 [Concomitant]
     Active Substance: INSULIN HUMAN
     Dates: start: 20200723, end: 20200727
  7. PANTOPRAZOLE [Concomitant]
     Active Substance: PANTOPRAZOLE
     Dates: start: 20200722, end: 20200727
  8. REMDESIVIR. [Suspect]
     Active Substance: REMDESIVIR
     Indication: COVID-19
     Route: 042
     Dates: start: 20200724, end: 20200724
  9. REMDESIVIR. [Suspect]
     Active Substance: REMDESIVIR
     Indication: COVID-19
     Route: 042
     Dates: start: 20200725, end: 20200726
  10. ASCOBIC ACID [Concomitant]
     Dates: start: 20200723, end: 20200727

REACTIONS (6)
  - Unresponsive to stimuli [None]
  - Bradycardia [None]
  - General physical health deterioration [None]
  - Cardio-respiratory arrest [None]
  - Cardiac arrest [None]
  - Hypotension [None]

NARRATIVE: CASE EVENT DATE: 20200727
